FAERS Safety Report 16791261 (Version 1)
Quarter: 2019Q3

REPORT INFORMATION
  Report Type: Spontaneous
  Country: US (occurrence: US)
  Receive Date: 20190719
  Receipt Date: 20190719
  Transmission Date: 20191005
  Serious: Yes (Other)
  Sender: FDA-Public Use
  Company Number: None

PATIENT
  Age: 12 Year
  Sex: Female
  Weight: 6.35 kg

DRUGS (1)
  1. ALTACHLORE SODIUM CHLORIDE HYPERTONICITY [Suspect]
     Active Substance: SODIUM CHLORIDE
     Indication: EYE DEGENERATIVE DISORDER
     Dosage: ?          QUANTITY:5 % PERCENT;?
     Route: 047
     Dates: start: 20190423, end: 20190719

REACTIONS (1)
  - Recalled product [None]

NARRATIVE: CASE EVENT DATE: 20190718
